FAERS Safety Report 25804432 (Version 2)
Quarter: 2025Q4

REPORT INFORMATION
  Report Type: Spontaneous
  Country: EU (occurrence: EU)
  Receive Date: 20250915
  Receipt Date: 20251001
  Transmission Date: 20260117
  Serious: Yes (Death, Other)
  Sender: NOVARTIS
  Company Number: EU-002147023-NVSC2025BE140587

PATIENT

DRUGS (3)
  1. DABRAFENIB [Suspect]
     Active Substance: DABRAFENIB
     Indication: Anaplastic thyroid cancer
     Dosage: 150 MG, BID
     Route: 065
  2. TRAMETINIB [Suspect]
     Active Substance: TRAMETINIB
     Indication: Anaplastic thyroid cancer
     Dosage: 2 MG, QD
     Route: 065
  3. PEMBROLIZUMAB [Suspect]
     Active Substance: PEMBROLIZUMAB
     Indication: Anaplastic thyroid cancer
     Dosage: 200 MG, Q3W
     Route: 065

REACTIONS (2)
  - Renal injury [Fatal]
  - Sepsis [Fatal]
